FAERS Safety Report 14984352 (Version 1)
Quarter: 2018Q2

REPORT INFORMATION
  Report Type: Report from Study
  Country: FR (occurrence: FR)
  Receive Date: 20180607
  Receipt Date: 20180607
  Transmission Date: 20180711
  Serious: Yes (Death, Hospitalization, Other)
  Sender: FDA-Public Use
  Company Number: FR-JAZZ-2018-FR-005227

PATIENT

DRUGS (7)
  1. DEFITELIO [Suspect]
     Active Substance: DEFIBROTIDE SODIUM
     Indication: VENOOCCLUSIVE DISEASE
     Dosage: 25 MG/KG, QD
     Route: 042
     Dates: start: 20160311, end: 20160331
  2. ESOMEPRAZOLE MAGNESIUM. [Concomitant]
     Active Substance: ESOMEPRAZOLE MAGNESIUM
     Indication: PROPHYLAXIS
     Dosage: 40 MG, QD
     Route: 048
     Dates: start: 20160304, end: 20160903
  3. MYCOPHENOLATE MOFETIL. [Concomitant]
     Active Substance: MYCOPHENOLATE MOFETIL
     Indication: PROPHYLAXIS
     Dosage: 1.5 G, QD
     Route: 048
     Dates: start: 20150804, end: 20151231
  4. BACTRIM [Concomitant]
     Active Substance: SULFAMETHOXAZOLE\TRIMETHOPRIM
     Indication: INFECTION PROPHYLAXIS
     Dosage: 800 MG, QD
     Route: 048
     Dates: start: 20160406, end: 20160903
  5. NEORAL [Concomitant]
     Active Substance: CYCLOSPORINE
     Indication: PROPHYLAXIS AGAINST GRAFT VERSUS HOST DISEASE
     Dosage: 100 MG, QD
     Route: 048
     Dates: start: 20160405, end: 20160903
  6. PHENOXYMETHYLPENICILLIN [Concomitant]
     Active Substance: PENICILLIN V
     Indication: INFECTION PROPHYLAXIS
     Dosage: 2 NU
     Route: 048
     Dates: start: 20160401, end: 20160903
  7. ZELITREX [Concomitant]
     Active Substance: VALACYCLOVIR HYDROCHLORIDE
     Indication: PROPHYLAXIS
     Dosage: 1 G, QD
     Route: 048
     Dates: start: 20160401, end: 20160903

REACTIONS (5)
  - Acute myeloid leukaemia recurrent [Fatal]
  - BK virus infection [Recovering/Resolving]
  - Embolism [Unknown]
  - Urinary tract infection viral [Recovered/Resolved]
  - Respiratory distress [Unknown]

NARRATIVE: CASE EVENT DATE: 20160417
